FAERS Safety Report 16972586 (Version 1)
Quarter: 2019Q4

REPORT INFORMATION
  Report Type: Spontaneous
  Country: TR (occurrence: TR)
  Receive Date: 20191030
  Receipt Date: 20191030
  Transmission Date: 20200122
  Serious: Yes (Other)
  Sender: FDA-Public Use
  Company Number: TR-AUROBINDO-AUR-APL-2019-070032

PATIENT
  Age: 69 Year
  Sex: Male

DRUGS (5)
  1. PRALATREXATE [Suspect]
     Active Substance: PRALATREXATE
     Indication: PERIPHERAL T-CELL LYMPHOMA UNSPECIFIED REFRACTORY
     Dosage: 30 MILLIGRAM/SQ. METER, EVERY WEEK
     Dates: start: 201602
  2. PRALATREXATE [Suspect]
     Active Substance: PRALATREXATE
     Dosage: 20 MILLIGRAM/SQ. METER,BEGINNING OF 9 TH CYCLE
     Dates: start: 20170822
  3. PRALATREXATE [Suspect]
     Active Substance: PRALATREXATE
     Dosage: UNK 6 CYCLE
     Dates: start: 20181112
  4. PRALATREXATE [Suspect]
     Active Substance: PRALATREXATE
     Dosage: UNK, 19 CYCLE
     Dates: start: 20190107
  5. PRALATREXATE [Suspect]
     Active Substance: PRALATREXATE
     Dosage: WEEKLY DOSE WAS DEFERRED
     Dates: start: 201603

REACTIONS (3)
  - Hypersensitivity [Recovered/Resolved]
  - Rash erythematous [Recovered/Resolved]
  - Dermatitis bullous [Recovered/Resolved]

NARRATIVE: CASE EVENT DATE: 201603
